FAERS Safety Report 8373080-9 (Version None)
Quarter: 2012Q2

REPORT INFORMATION
  Report Type: 
  Country: None (occurrence: None)
  Receive Date: 20120521
  Receipt Date: 20120514
  Transmission Date: 20120825
  Serious: Yes (Hospitalization)
  Sender: FDA-Public Use
  Company Number: PHFR2012GB002912

PATIENT
  Sex: Male

DRUGS (4)
  1. CLOZARIL [Suspect]
     Indication: SCHIZOPHRENIA
     Dosage: 300 MG, BID
     Route: 048
     Dates: start: 20111117
  2. CLOZARIL [Suspect]
     Route: 048
     Dates: start: 20120424
  3. CLOZARIL [Suspect]
     Dosage: 300 MG, (250/300)
     Route: 048
     Dates: start: 20120514
  4. CARBAMAZEPINE [Concomitant]
     Indication: AFFECTIVE DISORDER
     Dosage: 300 MG, BID

REACTIONS (4)
  - ANTIPSYCHOTIC DRUG LEVEL BELOW THERAPEUTIC [None]
  - CONVULSION [None]
  - DRUG INEFFECTIVE [None]
  - TRANSIENT ISCHAEMIC ATTACK [None]
